FAERS Safety Report 6411030-2 (Version None)
Quarter: 2009Q4

REPORT INFORMATION
  Report Type: 
  Country: None (occurrence: None)
  Receive Date: 20091020
  Receipt Date: 20091020
  Transmission Date: 20100525
  Serious: Yes (Hospitalization)
  Sender: FDA-Public Use
  Company Number: None

PATIENT
  Age: 31 Year
  Sex: Female
  Weight: 72.5755 kg

DRUGS (1)
  1. EFFEXOR XR [Suspect]
     Dosage: 150 MG EVERY 24 HOURS PO
     Route: 048
     Dates: start: 20090816, end: 20090904

REACTIONS (10)
  - AMNESIA [None]
  - ANGER [None]
  - CATATONIA [None]
  - CONDITION AGGRAVATED [None]
  - DEPRESSION [None]
  - DISORIENTATION [None]
  - HALLUCINATION [None]
  - MOOD SWINGS [None]
  - SOCIAL AVOIDANT BEHAVIOUR [None]
  - SUICIDAL IDEATION [None]
